FAERS Safety Report 21753574 (Version 1)
Quarter: 2022Q4

REPORT INFORMATION
  Report Type: Spontaneous
  Country: US (occurrence: US)
  Receive Date: 20221220
  Receipt Date: 20221220
  Transmission Date: 20230112
  Serious: No
  Sender: FDA-Public Use
  Company Number: US-CELLTRION INC.-2021US017738

PATIENT

DRUGS (1)
  1. TRUXIMA [Suspect]
     Active Substance: RITUXIMAB-ABBS
     Indication: Immunology test abnormal
     Dosage: 1000 MG, DAY 1, DAY 5 Q 6 MONTHS REPEAT DAY 1, DAY 5 (DOSE: 10 MG/ML)
     Dates: start: 20211027

REACTIONS (2)
  - Immunology test abnormal [Unknown]
  - Off label use [Unknown]

NARRATIVE: CASE EVENT DATE: 20220106
